FAERS Safety Report 9117823 (Version 4)
Quarter: 2013Q2

REPORT INFORMATION
  Report Type: Spontaneous
  Country: JP (occurrence: JP)
  Receive Date: 20130225
  Receipt Date: 20130403
  Transmission Date: 20140414
  Serious: Yes (Death)
  Sender: FDA-Public Use
  Company Number: JP-B.I. PHARMACEUTICALS,INC./RIDGEFIELD-2013-BI-04544NB

PATIENT
  Age: 81 Year
  Sex: Male

DRUGS (11)
  1. TRAZENTA [Suspect]
     Indication: DIABETES MELLITUS
     Dosage: 5 MG
     Route: 048
     Dates: start: 20130201, end: 20130208
  2. LASIX [Concomitant]
     Dosage: 40 MG
     Route: 048
     Dates: start: 20121225, end: 20130208
  3. ALFAROL [Concomitant]
     Dosage: 0.25 MCG
     Route: 048
     Dates: start: 20121225, end: 20130208
  4. ADALAT-CR [Concomitant]
     Dosage: 40 MG
     Route: 048
     Dates: start: 20121225, end: 20130208
  5. INHIBACE [Concomitant]
     Dosage: 1 MG
     Route: 048
     Dates: start: 20121225, end: 20130208
  6. CARDENALIN [Concomitant]
     Dosage: 4 MG
     Route: 048
     Dates: start: 20121225, end: 20130208
  7. BLOPRESS [Concomitant]
     Dosage: 12 MG
     Route: 048
     Dates: start: 20121225, end: 20130208
  8. FOSRENOL [Concomitant]
     Dosage: 1500 MG
     Route: 048
     Dates: start: 20121225, end: 20130208
  9. ARGAMATE [Concomitant]
     Dosage: 25 G
     Route: 048
     Dates: start: 20121225, end: 20130208
  10. NESP [Concomitant]
     Dosage: 80 MCG
     Route: 058
  11. DIOVAN [Concomitant]

REACTIONS (5)
  - Hypoglycaemic coma [Fatal]
  - Colitis ischaemic [Fatal]
  - General physical health deterioration [Fatal]
  - Haematochezia [Unknown]
  - Nephrogenic anaemia [Recovered/Resolved]
